FAERS Safety Report 21355582 (Version 2)
Quarter: 2022Q4

REPORT INFORMATION
  Report Type: Spontaneous
  Country: US (occurrence: US)
  Receive Date: 20220920
  Receipt Date: 20221018
  Transmission Date: 20230113
  Serious: No
  Sender: FDA-Public Use
  Company Number: US-GLAXOSMITHKLINE-US2022AMR131271

PATIENT
  Sex: Female
  Weight: 107 kg

DRUGS (1)
  1. ZEJULA [Suspect]
     Active Substance: NIRAPARIB
     Indication: Ovarian cancer
     Dosage: 200 MG, QD, (2 CAPSULE DAILY)
     Route: 048

REACTIONS (5)
  - Decreased activity [Unknown]
  - Surgery [Unknown]
  - Fatigue [Unknown]
  - Nausea [Recovering/Resolving]
  - Therapeutic response unexpected [Unknown]
